FAERS Safety Report 13160796 (Version 1)
Quarter: 2017Q1

REPORT INFORMATION
  Report Type: Spontaneous
  Country: US (occurrence: US)
  Receive Date: 20170130
  Receipt Date: 20170130
  Transmission Date: 20170428
  Serious: Yes (Hospitalization, Other)
  Sender: FDA-Public Use
  Company Number: US-NOVEN PHARMACEUTICALS, INC.-US2016002901

PATIENT

DRUGS (13)
  1. ANDROGEL [Concomitant]
     Active Substance: TESTOSTERONE
  2. PHENTERMINE. [Concomitant]
     Active Substance: PHENTERMINE
     Dosage: 7.5 MG, UNK
     Dates: start: 199510
  3. VITAMIN D [Concomitant]
     Active Substance: CHOLECALCIFEROL
     Dosage: 5000 IU, QD
  4. TESTOSTERONE. [Concomitant]
     Active Substance: TESTOSTERONE
  5. DAYTRANA [Suspect]
     Active Substance: METHYLPHENIDATE
     Indication: ATTENTION DEFICIT/HYPERACTIVITY DISORDER
     Dosage: 30 MG (SOMETIMES CUTTING 30 MG PATCHES INTO DIAGONAL HALVES), UNKNOWN
     Route: 062
     Dates: start: 201602
  6. DAYTRANA [Suspect]
     Active Substance: METHYLPHENIDATE
     Indication: DECREASED ACTIVITY
  7. THYROXINE [Concomitant]
     Active Substance: LEVOTHYROXINE
  8. OMNITROPE [Concomitant]
     Active Substance: SOMATROPIN
     Dosage: 350 MG, UNK
  9. LISINOPRIL. [Concomitant]
     Active Substance: LISINOPRIL
     Dosage: 40 MG, UNK
  10. ASPIRIN. [Concomitant]
     Active Substance: ASPIRIN
     Dosage: 81 MG, UNK
  11. CRESTOR [Concomitant]
     Active Substance: ROSUVASTATIN CALCIUM
     Dosage: 20 MG, UNK
  12. ATENOLOL. [Concomitant]
     Active Substance: ATENOLOL
     Dosage: 20 MG, UNK
  13. LEVOTHYROXINE. [Concomitant]
     Active Substance: LEVOTHYROXINE

REACTIONS (9)
  - Spinal operation [Recovered/Resolved]
  - Application site rash [Unknown]
  - Application site swelling [Unknown]
  - Product quality issue [Unknown]
  - Application site erythema [Unknown]
  - Wrong technique in product usage process [Not Recovered/Not Resolved]
  - Application site pruritus [Unknown]
  - Off label use [Unknown]
  - Product adhesion issue [Unknown]

NARRATIVE: CASE EVENT DATE: 20161115
